FAERS Safety Report 5769705-4 (Version None)
Quarter: 2008Q2

REPORT INFORMATION
  Report Type: 
  Country: None (occurrence: None)
  Receive Date: 20080612
  Receipt Date: 20080408
  Transmission Date: 20081010
  Serious: No
  Sender: FDA-Public Use
  Company Number: US-ABBOTT-08P-163-0445913-00

PATIENT
  Sex: Female
  Weight: 112.14 kg

DRUGS (7)
  1. HUMIRA [Suspect]
     Indication: ANKYLOSING SPONDYLITIS
     Dates: start: 20071101, end: 20080201
  2. HUMIRA [Suspect]
     Dates: start: 20080201, end: 20080410
  3. HUMIRA [Suspect]
     Dates: start: 20080410
  4. ATENOLOL [Concomitant]
     Indication: HYPERTENSION
     Dosage: 1 IN 1 DAY
     Route: 048
  5. LISINOPRIL [Concomitant]
     Indication: HYPERTENSION
     Dosage: 1 IN 1 DAY
     Route: 048
  6. HYDROCHLOROTHIAZIDE [Concomitant]
     Indication: OEDEMA PERIPHERAL
     Dosage: 1 IN 1 DAY
     Route: 048
  7. HYDROCHLOROTHIAZIDE [Concomitant]
     Indication: HYPERTENSION

REACTIONS (4)
  - ARTHRALGIA [None]
  - BACK PAIN [None]
  - FATIGUE [None]
  - HYPOTENSION [None]
